FAERS Safety Report 10236168 (Version 1)
Quarter: 2014Q2

REPORT INFORMATION
  Report Type: Spontaneous
  Country: DE (occurrence: None)
  Receive Date: 20140611
  Receipt Date: 20140611
  Transmission Date: 20141212
  Serious: Yes (Hospitalization)
  Sender: FDA-Public Use
  Company Number: SYM-2014-21382

PATIENT
  Age: 64 Year
  Sex: Male
  Weight: 70 kg

DRUGS (3)
  1. ZYCLARA (IMIQUIMOD) (IMIQUIMOD) [Suspect]
     Indication: ACTINIC KERATOSIS
     Dosage: 1 DOSAGE FORMS, 1 IN 1 D
     Dates: start: 20140505, end: 20140514
  2. FUCIDINE (FUSIDIC ACID) (OINTMENT) (FUSIDIC ACID) [Concomitant]
  3. CEFUROXIN (CEFUROXIME SODIUM) (CEFUROXIME SODIUM) [Concomitant]

REACTIONS (7)
  - Chills [None]
  - Pain in extremity [None]
  - General physical condition abnormal [None]
  - Influenza like illness [None]
  - Myalgia [None]
  - Application site scab [None]
  - Infection [None]
